FAERS Safety Report 6360997-X (Version None)
Quarter: 2009Q3

REPORT INFORMATION
  Report Type: 
  Country: None (occurrence: None)
  Receive Date: 20090918
  Receipt Date: 20090526
  Transmission Date: 20100115
  Serious: No
  Sender: FDA-Public Use
  Company Number: A0786125A

PATIENT
  Age: 43 Year
  Sex: Female

DRUGS (3)
  1. PROMACTA [Suspect]
     Indication: IDIOPATHIC THROMBOCYTOPENIC PURPURA
     Dosage: 25 PER DAY
     Route: 048
     Dates: start: 20090516
  2. LISINOPRIL [Concomitant]
  3. PREDNISONE [Concomitant]

REACTIONS (2)
  - CYSTITIS [None]
  - MYALGIA [None]
